FAERS Safety Report 5339072-9 (Version None)
Quarter: 2007Q2

REPORT INFORMATION
  Report Type: 
  Country: None (occurrence: None)
  Receive Date: 20070530
  Receipt Date: 20070518
  Transmission Date: 20071010
  Serious: Yes (Hospitalization, Other)
  Sender: FDA-Public Use
  Company Number: US-PFIZER INC-2007039720

PATIENT
  Age: 13 Year
  Sex: Male
  Weight: 33.2 kg

DRUGS (2)
  1. SUTENT [Suspect]
     Indication: NEOPLASM
     Route: 048
  2. POTASSIUM IODIDE [Suspect]

REACTIONS (9)
  - ALANINE AMINOTRANSFERASE INCREASED [None]
  - ANOREXIA [None]
  - ASPARTATE AMINOTRANSFERASE INCREASED [None]
  - DEHYDRATION [None]
  - HYPOKALAEMIA [None]
  - HYPOPHOSPHATAEMIA [None]
  - HYPOTENSION [None]
  - HYPOTHYROIDISM [None]
  - WEIGHT DECREASED [None]
